FAERS Safety Report 12663158 (Version 1)
Quarter: 2016Q3

REPORT INFORMATION
  Report Type: Spontaneous
  Country: US (occurrence: None)
  Receive Date: 20160817
  Receipt Date: 20160817
  Transmission Date: 20161109
  Serious: Yes (Disabling, Other)
  Sender: FDA-Public Use
  Company Number: None

PATIENT
  Age: 33 Year
  Sex: Female
  Weight: 65.77 kg

DRUGS (12)
  1. MULTI VITAMIN [Concomitant]
     Active Substance: VITAMINS
  2. BIOTIN [Concomitant]
     Active Substance: BIOTIN
  3. LUNESTA [Concomitant]
     Active Substance: ESZOPICLONE
  4. DEPO-PROVERA [Concomitant]
     Active Substance: MEDROXYPROGESTERONE ACETATE
  5. VITAMIN E [Concomitant]
     Active Substance: .ALPHA.-TOCOPHEROL
  6. PATINASE [Concomitant]
  7. FLONASE [Concomitant]
     Active Substance: FLUTICASONE PROPIONATE
  8. FISH OIL [Concomitant]
     Active Substance: FISH OIL
  9. MAGNESIUM [Concomitant]
     Active Substance: MAGNESIUM
  10. CALCIUM PLUS D [Concomitant]
     Active Substance: CALCIUM\VITAMIN D
  11. DULOXETINE. [Suspect]
     Active Substance: DULOXETINE
     Indication: MAJOR DEPRESSION
     Dosage: DULOXETINE DELAYED RELEASE CAPS - 1 CAPSULE ONCE A DAY TAKEN BY MOUTH
     Route: 048
     Dates: start: 20151215, end: 20160816
  12. GLUCOSAMINE AND CHONDROITIN [Concomitant]
     Active Substance: CHONDROITIN SULFATE (BOVINE)\GLUCOSAMINE HYDROCHLORIDE

REACTIONS (19)
  - Vertigo [None]
  - Hypomania [None]
  - Blood pressure increased [None]
  - Nausea [None]
  - Drug titration error [None]
  - General physical health deterioration [None]
  - Fatigue [None]
  - Abdominal distension [None]
  - Withdrawal syndrome [None]
  - Irritability [None]
  - Anxiety [None]
  - Condition aggravated [None]
  - Headache [None]
  - Mental disorder [None]
  - Constipation [None]
  - Decreased appetite [None]
  - Agoraphobia [None]
  - Impatience [None]
  - Activities of daily living impaired [None]

NARRATIVE: CASE EVENT DATE: 20160801
